FAERS Safety Report 13753339 (Version 1)
Quarter: 2017Q3

REPORT INFORMATION
  Report Type: Spontaneous
  Country: GB (occurrence: US)
  Receive Date: 20170712
  Receipt Date: 20170712
  Transmission Date: 20171127
  Serious: Yes (Hospitalization, Disabling, Other)
  Sender: FDA-Public Use
  Company Number: None

PATIENT
  Age: 54 Year
  Sex: Female
  Weight: 52 kg

DRUGS (15)
  1. AZATHIOPRINE. [Concomitant]
     Active Substance: AZATHIOPRINE
  2. PREDNISOLONE. [Concomitant]
     Active Substance: PREDNISOLONE
  3. FENTANYL TRANSDERMAL SYSTEM [Concomitant]
     Active Substance: FENTANYL
  4. PARACETAMOL [Concomitant]
     Active Substance: ACETAMINOPHEN
  5. FEXOFENADINE [Concomitant]
     Active Substance: FEXOFENADINE\FEXOFENADINE HYDROCHLORIDE
  6. INSULIN [Concomitant]
     Active Substance: INSULIN NOS
  7. TRAMADOLE [Concomitant]
     Active Substance: TRAMADOL HYDROCHLORIDE
  8. ACICLOVIR [Concomitant]
     Active Substance: ACYCLOVIR
  9. GABAPENTIN. [Concomitant]
     Active Substance: GABAPENTIN
  10. NOVA RAPID LANGUAGE [Concomitant]
  11. TACROLIMUS. [Concomitant]
     Active Substance: TACROLIMUS
  12. WARFARIN [Concomitant]
     Active Substance: WARFARIN
  13. GADOLINIUM [Suspect]
     Active Substance: GADOLINIUM
     Indication: SCAN
     Route: 042
     Dates: start: 20000606
  14. OPEMPRZOLE [Concomitant]
  15. METROPOLIS [Concomitant]

REACTIONS (1)
  - Nephrogenic systemic fibrosis [None]

NARRATIVE: CASE EVENT DATE: 20000906
